FAERS Safety Report 6246012-7 (Version None)
Quarter: 2009Q2

REPORT INFORMATION
  Report Type: 
  Country: None (occurrence: None)
  Receive Date: 20090626
  Receipt Date: 20081028
  Transmission Date: 20091009
  Serious: No
  Sender: FDA-Public Use
  Company Number: A0754068A

PATIENT
  Age: 54 Year
  Sex: Female

DRUGS (5)
  1. IMITREX [Suspect]
     Indication: MIGRAINE
     Dosage: 100MG AS REQUIRED
     Route: 048
  2. IMITREX [Suspect]
     Dosage: 6MG AS REQUIRED
     Route: 058
  3. ZOLOFT [Concomitant]
  4. ALEVE [Concomitant]
  5. ADVIL [Concomitant]

REACTIONS (2)
  - ARTHRITIS [None]
  - MUSCLE SPASMS [None]
